FAERS Safety Report 7991025-8 (Version None)
Quarter: 2011Q4

REPORT INFORMATION
  Report Type: 
  Country: None (occurrence: None)
  Receive Date: 20111219
  Receipt Date: 20111215
  Transmission Date: 20120403
  Serious: Yes (Other)
  Sender: FDA-Public Use
  Company Number: CA-ROCHE-1022701

PATIENT
  Sex: Female
  Weight: 78.088 kg

DRUGS (9)
  1. ACTEMRA [Suspect]
     Indication: RHEUMATOID ARTHRITIS
     Route: 042
     Dates: start: 20110831
  2. MELOXICAM [Concomitant]
  3. ADVAIR DISKUS 100/50 [Concomitant]
  4. CALCIUM [Concomitant]
  5. METHOTREXATE [Concomitant]
     Route: 048
  6. RABEPRAZOLE SODIUM [Concomitant]
  7. TYLENOL-500 [Concomitant]
     Indication: PAIN
  8. VENTOLIN [Concomitant]
  9. FOLIC ACID [Concomitant]

REACTIONS (1)
  - ASTHMA [None]
